FAERS Safety Report 8074796-4 (Version None)
Quarter: 2012Q1

REPORT INFORMATION
  Report Type: 
  Country: None (occurrence: None)
  Receive Date: 20120126
  Receipt Date: 20120124
  Transmission Date: 20120608
  Serious: No
  Sender: FDA-Public Use
  Company Number: US-PFIZER INC-2012020782

PATIENT
  Sex: Female
  Weight: 61.224 kg

DRUGS (2)
  1. LYRICA [Suspect]
     Dosage: 375 MG, 2X/DAY
     Route: 048
     Dates: start: 20100726
  2. ULTRAM [Concomitant]
     Indication: RESTLESS LEGS SYNDROME
     Dosage: 150 MG, 2X/DAY

REACTIONS (2)
  - MALAISE [None]
  - NASOPHARYNGITIS [None]
